FAERS Safety Report 7471960-X (Version None)
Quarter: 2011Q2

REPORT INFORMATION
  Report Type: 
  Country: None (occurrence: None)
  Receive Date: 20110511
  Receipt Date: 20100811
  Transmission Date: 20111010
  Serious: No
  Sender: FDA-Public Use
  Company Number: A0877033A

PATIENT
  Sex: Female

DRUGS (1)
  1. TYKERB [Suspect]
     Dosage: 1500MG PER DAY
     Route: 048
     Dates: start: 20100723

REACTIONS (1)
  - HEART RATE INCREASED [None]
